FAERS Safety Report 12273274 (Version 2)
Quarter: 2016Q2

REPORT INFORMATION
  Report Type: Spontaneous
  Country: DE (occurrence: DE)
  Receive Date: 20160415
  Receipt Date: 20160429
  Transmission Date: 20160815
  Serious: Yes (Disabling)
  Sender: FDA-Public Use
  Company Number: DE-MYLANLABS-2016M1015041

PATIENT

DRUGS (5)
  1. ALENDRONSAEURE [Concomitant]
     Active Substance: ALENDRONATE SODIUM
     Indication: PRODUCT USED FOR UNKNOWN INDICATION
     Dosage: UNK
     Dates: start: 201510
  2. DEKRISTOL [Concomitant]
     Active Substance: CHOLECALCIFEROL
     Indication: PRODUCT USED FOR UNKNOWN INDICATION
     Dosage: UNK (2X PER MONTH)
     Dates: start: 201507
  3. ARCOXIA [Concomitant]
     Active Substance: ETORICOXIB
     Indication: PRODUCT USED FOR UNKNOWN INDICATION
     Dosage: UNK (IF NEEDED RARELY USED)
     Dates: start: 201507
  4. PREDNISOLON                        /00016201/ [Concomitant]
     Active Substance: PREDNISOLONE
     Indication: PRODUCT USED FOR UNKNOWN INDICATION
     Dosage: UNK (DAILY)
     Dates: start: 201507
  5. MTX-DURA 7,5 MG/ML INJEKTIONSL?SUNG [Suspect]
     Active Substance: METHOTREXATE SODIUM
     Indication: RHEUMATOID ARTHRITIS
     Dosage: 10 MG, QW
     Route: 065
     Dates: start: 201511, end: 20151218

REACTIONS (5)
  - Nausea [Recovered/Resolved]
  - Fatigue [Recovered/Resolved]
  - Impaired work ability [Unknown]
  - Headache [Recovered/Resolved]
  - Tension [Recovered/Resolved]
